FAERS Safety Report 12124222 (Version 1)
Quarter: 2016Q1

REPORT INFORMATION
  Report Type: Spontaneous
  Country: US (occurrence: US)
  Receive Date: 20160229
  Receipt Date: 20160229
  Transmission Date: 20160526
  Serious: No
  Sender: FDA-Public Use
  Company Number: US-ACTAVIS-2015-29053

PATIENT
  Sex: Female

DRUGS (1)
  1. BUPRENORPHINE HYDROCHLORIDE (AELLC) [Suspect]
     Active Substance: BUPRENORPHINE HYDROCHLORIDE
     Indication: OPIATES
     Dosage: 1.5 TABLETS UNDER TONGUE, DAILY
     Route: 060
     Dates: start: 2013

REACTIONS (1)
  - Drug screen negative [Unknown]

NARRATIVE: CASE EVENT DATE: 201511
